FAERS Safety Report 4924959-9 (Version None)
Quarter: 2006Q1

REPORT INFORMATION
  Report Type: 
  Country: None (occurrence: None)
  Receive Date: 20060222
  Receipt Date: 20060216
  Transmission Date: 20060701
  Serious: Yes (Hospitalization)
  Sender: FDA-Public Use
  Company Number: THQ2006A00114

PATIENT
  Age: 87 Year
  Sex: Female

DRUGS (17)
  1. ACTOS [Suspect]
     Dosage: SEE IMAGE
     Dates: start: 20041116, end: 20050912
  2. ACTOS [Suspect]
     Dosage: SEE IMAGE
     Dates: start: 20050101, end: 20060101
  3. ALTACE [Concomitant]
  4. INSULIN SUSPENSION, NPH                        (INSULIN INJECTION, ISO [Concomitant]
  5. NORVASC [Concomitant]
  6. LIPITOR [Concomitant]
  7. RISPERDAL /SWE/ (RISPERIDONE) [Concomitant]
  8. INSULIN-TRONT (INSULIN ZINC SUSPENSION) [Concomitant]
  9. GLUCOPHAGE [Concomitant]
  10. NITRODUR II (GLYCERYL TRINITRATE) [Concomitant]
  11. PREVACID [Concomitant]
  12. SYNTHROID [Concomitant]
  13. DITROPAN [Concomitant]
  14. MONOCOR              (BISOPROLOL FUMARATE) [Concomitant]
  15. ASPIRIN TAB [Concomitant]
  16. LASIX [Concomitant]
  17. PLAVIX [Concomitant]

REACTIONS (6)
  - ACUTE CORONARY SYNDROME [None]
  - ANAEMIA [None]
  - ATRIAL FIBRILLATION [None]
  - CARDIAC FAILURE [None]
  - DRUG INEFFECTIVE [None]
  - TACHYCARDIA [None]
